FAERS Safety Report 9224189 (Version 1)
Quarter: 2013Q2

REPORT INFORMATION
  Report Type: Spontaneous
  Country: US (occurrence: US)
  Receive Date: 20130411
  Receipt Date: 20130411
  Transmission Date: 20140414
  Serious: No
  Sender: FDA-Public Use
  Company Number: US-PFIZER INC-2013111070

PATIENT
  Age: 80 Year
  Sex: Female

DRUGS (10)
  1. SUTENT [Suspect]
     Indication: RENAL CANCER
     Dosage: 50 MG, UNK
     Dates: start: 20130320
  2. VITACAL [Concomitant]
     Dosage: UNK
  3. CITALOPRAM HYDROBROMIDE [Concomitant]
     Dosage: UNK
  4. PRENATE ULTRA [Concomitant]
     Dosage: UNK
  5. SIMVASTATIN [Concomitant]
     Dosage: UNK
  6. COUMADINE [Concomitant]
     Dosage: UNK
  7. SYNTHROID [Concomitant]
     Dosage: UNK
  8. DIGOXIN [Concomitant]
     Dosage: UNK
  9. DRAMAMINE [Concomitant]
     Dosage: UNK
  10. METOPROLOL TARTRATE [Concomitant]
     Dosage: UNK

REACTIONS (3)
  - Fatigue [Unknown]
  - Diarrhoea [Unknown]
  - Glossodynia [Unknown]
